FAERS Safety Report 13933371 (Version 1)
Quarter: 2017Q3

REPORT INFORMATION
  Report Type: Spontaneous
  Country: IN (occurrence: IN)
  Receive Date: 20170904
  Receipt Date: 20170904
  Transmission Date: 20171127
  Serious: Yes (Other)
  Sender: FDA-Public Use
  Company Number: IN-BAUSCH-BL-2017-026208

PATIENT
  Age: 22 Year
  Sex: Male

DRUGS (16)
  1. PREDNISOLONE. [Suspect]
     Active Substance: PREDNISOLONE
     Route: 048
  2. PREDNISOLONE. [Suspect]
     Active Substance: PREDNISOLONE
     Route: 048
  3. PREDNISOLONE. [Suspect]
     Active Substance: PREDNISOLONE
     Route: 048
  4. THALIDOMIDE [Concomitant]
     Active Substance: THALIDOMIDE
  5. PREDNISOLONE. [Suspect]
     Active Substance: PREDNISOLONE
     Route: 048
  6. RIFAMPICIN [Concomitant]
     Active Substance: RIFAMPIN
     Indication: LEPROSY
  7. THALIDOMIDE [Concomitant]
     Active Substance: THALIDOMIDE
     Indication: TYPE 2 LEPRA REACTION
  8. PREDNISOLONE. [Suspect]
     Active Substance: PREDNISOLONE
     Route: 048
  9. DAPSONE. [Concomitant]
     Active Substance: DAPSONE
     Indication: LEPROSY
  10. PREDNISOLONE. [Suspect]
     Active Substance: PREDNISOLONE
     Indication: LEPROSY
     Route: 048
  11. PREDNISOLONE. [Suspect]
     Active Substance: PREDNISOLONE
     Indication: TYPE 2 LEPRA REACTION
     Route: 048
  12. AZATHIOPRINE. [Concomitant]
     Active Substance: AZATHIOPRINE
     Indication: TYPE 2 LEPRA REACTION
  13. AZATHIOPRINE. [Concomitant]
     Active Substance: AZATHIOPRINE
  14. PREDNISOLONE. [Suspect]
     Active Substance: PREDNISOLONE
     Route: 048
  15. CLOFAZIMINE [Concomitant]
     Active Substance: CLOFAZIMINE
     Indication: LEPROSY
  16. THALIDOMIDE [Concomitant]
     Active Substance: THALIDOMIDE

REACTIONS (2)
  - Muscle atrophy [Unknown]
  - Cushingoid [Unknown]
